FAERS Safety Report 4920250-5 (Version None)
Quarter: 2006Q1

REPORT INFORMATION
  Report Type: 
  Country: None (occurrence: None)
  Receive Date: 20060113
  Receipt Date: 20050928
  Transmission Date: 20060701
  Serious: No
  Sender: FDA-Public Use
  Company Number: 2005SP003265

PATIENT
  Age: 28 Year
  Sex: Female

DRUGS (5)
  1. LUNESTA [Suspect]
     Dosage: 3 MG, HS, ORAL
     Route: 048
     Dates: start: 20050926, end: 20050101
  2. CLONAZEPAM [Concomitant]
  3. ZOLOFT [Concomitant]
  4. TOPAMAX [Concomitant]
  5. TRAZODONE HCL [Concomitant]

REACTIONS (1)
  - DYSGEUSIA [None]
